FAERS Safety Report 23991696 (Version 2)
Quarter: 2024Q3

REPORT INFORMATION
  Report Type: Report from Study
  Country: US (occurrence: US)
  Receive Date: 20240619
  Receipt Date: 20240820
  Transmission Date: 20241016
  Serious: Yes (Hospitalization, Other)
  Sender: GILEAD
  Company Number: US-GILEAD-2024-0677678

PATIENT
  Age: 71 Year
  Sex: Female

DRUGS (2)
  1. AZTREONAM LYSINE [Suspect]
     Active Substance: AZTREONAM LYSINE
     Indication: Bronchiectasis
     Dosage: INHALE 1 ML VIAL (75 MG) VIA ALTERA NEBULIZER THREE TIMES A DAY FOR 28 DAYS FOLLOWED BY 28 DAYS OFF
     Route: 055
  2. AZTREONAM LYSINE [Suspect]
     Active Substance: AZTREONAM LYSINE
     Dosage: 75 MG, TID (INHALE 1 ML VIAL (75 MG) VIA ALTERA NEBULIZER THREE TIMES A DAY FOR 28 DAYS FOLLOWED BY
     Route: 055

REACTIONS (3)
  - Pneumonia [Unknown]
  - Illness [Unknown]
  - Off label use [Not Recovered/Not Resolved]

NARRATIVE: CASE EVENT DATE: 20240701
